FAERS Safety Report 15021109 (Version 1)
Quarter: 2018Q2

REPORT INFORMATION
  Report Type: Spontaneous
  Country: AU (occurrence: AU)
  Receive Date: 20180618
  Receipt Date: 20180618
  Transmission Date: 20180711
  Serious: Yes (Other)
  Sender: FDA-Public Use
  Company Number: AU-CELGENEUS-AUS-20180601708

PATIENT
  Sex: Female

DRUGS (2)
  1. THALIDOMIDE [Suspect]
     Active Substance: THALIDOMIDE
     Dosage: LAST DISPENSED APPROVED ON 16APR2018
     Route: 048
     Dates: start: 201804
  2. THALIDOMIDE [Suspect]
     Active Substance: THALIDOMIDE
     Indication: PLASMA CELL MYELOMA
     Dosage: FIRST DISPENSE APPROVED ON 03FEB2015
     Route: 048
     Dates: start: 201502

REACTIONS (1)
  - Cardiac murmur [Unknown]
